FAERS Safety Report 26008536 (Version 2)
Quarter: 2025Q4

REPORT INFORMATION
  Report Type: Spontaneous
  Country: EU (occurrence: EU)
  Receive Date: 20251106
  Receipt Date: 20251106
  Transmission Date: 20260118
  Serious: Yes (Death, Hospitalization)
  Sender: GE HEALTHCARE
  Company Number: EU-GE HEALTHCARE-2025CSU006046

PATIENT
  Age: 78 Year
  Sex: Male

DRUGS (11)
  1. OMNIPAQUE [Suspect]
     Active Substance: IOHEXOL
     Indication: Angiogram
     Dosage: UNK UNK, TOTAL
     Route: 042
     Dates: start: 20250509
  2. Paralief [Concomitant]
     Dosage: 500 MG, TID
     Route: 048
  3. DEXKETOPROFEN TROMETAMOL [Concomitant]
     Active Substance: DEXKETOPROFEN TROMETAMOL
     Dosage: 25 MG, TID
     Route: 048
  4. NEURONTIN [Concomitant]
     Active Substance: GABAPENTIN
     Dosage: 100 MG, TID
     Route: 048
  5. LERCANIDIPINE [Concomitant]
     Active Substance: LERCANIDIPINE
     Dosage: 10 MG, QD
  6. Lactulose fresenius [Concomitant]
     Dosage: UNK UNK, BID
     Route: 048
  7. Hydrocortisyl [Concomitant]
     Dosage: UNK UNK, TID
     Route: 061
  8. SALINE [Concomitant]
     Active Substance: SODIUM CHLORIDE
     Dosage: UNK UNK, TID
     Route: 050
  9. LANSOPRAZOLE [Concomitant]
     Active Substance: LANSOPRAZOLE
     Dosage: 30 MG, QD
     Route: 048
  10. Solpadeine [Concomitant]
     Dosage: UNK UNK, TID
     Route: 048
  11. Solpadeine [Concomitant]
     Dosage: UNK UNK, TID
     Route: 048

REACTIONS (4)
  - Brain oedema [Fatal]
  - Contrast encephalopathy [Fatal]
  - Respiratory distress [Fatal]
  - Seizure [Fatal]

NARRATIVE: CASE EVENT DATE: 20250509
